FAERS Safety Report 7593749-3 (Version None)
Quarter: 2011Q3

REPORT INFORMATION
  Report Type: 
  Country: None (occurrence: None)
  Receive Date: 20110706
  Receipt Date: 20110627
  Transmission Date: 20111222
  Serious: Yes (Other)
  Sender: FDA-Public Use
  Company Number: PHFR2010GB02509

PATIENT
  Sex: Female

DRUGS (2)
  1. DEPAKOTE [Concomitant]
     Dosage: 2 G, UNK
     Route: 048
  2. CLOZAPINE [Suspect]
     Indication: SCHIZOAFFECTIVE DISORDER
     Dosage: 250 MG, QD
     Route: 048
     Dates: start: 20071116

REACTIONS (4)
  - THROMBOCYTOPENIA [None]
  - ANTIPSYCHOTIC DRUG LEVEL INCREASED [None]
  - MYELOCYTE PRESENT [None]
  - NEUTROPENIA [None]
